FAERS Safety Report 4362872-9 (Version None)
Quarter: 2004Q2

REPORT INFORMATION
  Report Type: 
  Country: None (occurrence: None)
  Receive Date: 20040518
  Receipt Date: 20040311
  Transmission Date: 20050107
  Serious: Yes (Other)
  Sender: FDA-Public Use
  Company Number: 001#1#2004-00067

PATIENT
  Sex: Male

DRUGS (1)
  1. PROSTAVASIN-OHNE-DOSIS (ALPROSTADIL (PAOD)) [Suspect]

REACTIONS (4)
  - CARDIAC ARREST [None]
  - GASTROINTESTINAL DISORDER [None]
  - HEPATITIS ACUTE [None]
  - HYPOGLYCAEMIA [None]
